FAERS Safety Report 8947004 (Version 1)
Quarter: 2012Q4

REPORT INFORMATION
  Report Type: 
  Country: GB (occurrence: GB)
  Receive Date: 20121205
  Receipt Date: 20121205
  Transmission Date: 20130627
  Serious: Yes (Hospitalization)
  Sender: FDA-Public Use
  Company Number: GB-AMGEN-GBRCT2012077815

PATIENT
  Age: 46 Year
  Weight: 70 kg

DRUGS (3)
  1. PEGFILGRASTIM [Suspect]
     Indication: BREAST CANCER
     Dosage: UNK
     Dates: start: 20080702
  2. CAPECITABINE [Concomitant]
     Indication: BREAST CANCER
     Dosage: 4300 mg, qd
     Route: 048
     Dates: start: 20081029
  3. EPIRUBICIN [Concomitant]
     Indication: BREAST CANCER
     Dosage: 100 mg/m2, q2wk
     Route: 042
     Dates: start: 20080702

REACTIONS (1)
  - Convulsion [Recovered/Resolved]
